FAERS Safety Report 9781041 (Version 1)
Quarter: 2013Q4

REPORT INFORMATION
  Report Type: Spontaneous
  Country: PK (occurrence: PK)
  Receive Date: 20131224
  Receipt Date: 20131224
  Transmission Date: 20140711
  Serious: Yes (Other)
  Sender: FDA-Public Use
  Company Number: PK-SA-2013SA131915

PATIENT
  Age: 35 Year
  Sex: Female

DRUGS (1)
  1. CLAFORAN [Suspect]
     Indication: PROPHYLAXIS
     Route: 042
     Dates: start: 20131202, end: 20131202

REACTIONS (3)
  - Asphyxia [Recovered/Resolved]
  - Hypotension [Recovered/Resolved]
  - Exposure during pregnancy [Unknown]
